FAERS Safety Report 11534463 (Version 1)
Quarter: 2015Q3

REPORT INFORMATION
  Report Type: Report from Study
  Country: VE (occurrence: VE)
  Receive Date: 20150922
  Receipt Date: 20150922
  Transmission Date: 20151125
  Serious: Yes (Other)
  Sender: FDA-Public Use
  Company Number: PHHY2014VE119075

PATIENT
  Sex: Female

DRUGS (2)
  1. SANDOSTATIN LAR DEPOT [Suspect]
     Active Substance: OCTREOTIDE ACETATE
     Indication: ACROMEGALY
     Dosage: 20 MG, QMO
     Route: 030
     Dates: start: 201402
  2. CARVEDILOL. [Concomitant]
     Active Substance: CARVEDILOL
     Indication: VASCULAR OCCLUSION
     Dosage: 0.5 DF, UNK
     Route: 065

REACTIONS (5)
  - Hypoaesthesia [Unknown]
  - Feeling abnormal [Unknown]
  - Asphyxia [Unknown]
  - Pain in extremity [Unknown]
  - Pain [Unknown]
